FAERS Safety Report 8879463 (Version 2)
Quarter: 2013Q2

REPORT INFORMATION
  Report Type: Report from Study
  Country: FR (occurrence: FR)
  Receive Date: 20121031
  Receipt Date: 20130424
  Transmission Date: 20140414
  Serious: Yes (Hospitalization, Other)
  Sender: FDA-Public Use
  Company Number: FR-BAXTER-2012BAX020951

PATIENT
  Age: 15 Year
  Sex: Male
  Weight: 52 kg

DRUGS (17)
  1. HOLOXAN 2000 MG, POUDRE POUR USAGE PARENT?RAL [Suspect]
     Indication: SARCOMA METASTATIC
     Dosage: 3 G/M2
     Route: 042
     Dates: start: 20100201
  2. HOLOXAN 2000 MG, POUDRE POUR USAGE PARENT?RAL [Suspect]
     Dosage: 3 G/M2
     Route: 042
     Dates: start: 20100202
  3. HOLOXAN 2000 MG, POUDRE POUR USAGE PARENT?RAL [Suspect]
     Dosage: 3 G/M2
     Route: 042
     Dates: start: 20100224
  4. VINCRISTINE [Suspect]
     Indication: SARCOMA METASTATIC
     Route: 042
     Dates: start: 20100201
  5. VINCRISTINE [Suspect]
     Route: 042
     Dates: start: 20100208
  6. VINCRISTINE [Suspect]
     Route: 042
     Dates: start: 20100302
  7. DOXORUBICIN [Suspect]
     Indication: SARCOMA METASTATIC
     Route: 042
     Dates: start: 20100201
  8. DOXORUBICIN [Suspect]
     Route: 042
     Dates: start: 20100202
  9. DOXORUBICIN [Suspect]
     Route: 042
     Dates: start: 20100225
  10. ACTINOMYCIN D [Suspect]
     Indication: SARCOMA METASTATIC
     Route: 042
     Dates: start: 20100201
  11. ACTINOMYCIN D [Suspect]
     Route: 042
     Dates: start: 20100223
  12. ACTISKENAN [Concomitant]
     Indication: PRODUCT USED FOR UNKNOWN INDICATION
     Route: 065
     Dates: start: 20100115, end: 201003
  13. ACTISKENAN [Concomitant]
     Route: 065
     Dates: start: 20100320
  14. RIVOTRIL [Concomitant]
     Indication: PRODUCT USED FOR UNKNOWN INDICATION
     Route: 065
     Dates: start: 20100308, end: 20100406
  15. VERSATIS [Concomitant]
     Indication: PRODUCT USED FOR UNKNOWN INDICATION
     Route: 065
     Dates: start: 20100324, end: 20100411
  16. SULFAMETHOXAZOLE [Concomitant]
     Indication: PRODUCT USED FOR UNKNOWN INDICATION
     Route: 065
     Dates: start: 20100203
  17. RED BLOOD TRANSFUSION [Concomitant]
     Indication: PRODUCT USED FOR UNKNOWN INDICATION
     Dosage: 2 PACKS
     Route: 065
     Dates: start: 20100326

REACTIONS (5)
  - Febrile neutropenia [Recovered/Resolved]
  - Febrile neutropenia [Recovered/Resolved]
  - Febrile neutropenia [Recovered/Resolved]
  - Anal inflammation [Recovered/Resolved]
  - Weight decreased [Unknown]
